FAERS Safety Report 15128850 (Version 1)
Quarter: 2018Q3

REPORT INFORMATION
  Report Type: Spontaneous
  Country: CN (occurrence: CN)
  Receive Date: 20180711
  Receipt Date: 20180711
  Transmission Date: 20181010
  Serious: Yes (Other)
  Sender: FDA-Public Use
  Company Number: CN-BAXTER-2018BAX018814

PATIENT
  Age: 28 Year
  Sex: Female

DRUGS (6)
  1. MINGKEXIN [Suspect]
     Active Substance: CEFUROXIME SODIUM
     Indication: PERIODONTITIS
     Dosage: AFTER INFUSION OF ABOUT ONE THIRD
     Route: 041
     Dates: start: 20180515, end: 20180515
  2. 0.9% SODIUM CHLORIDE INJECTION [Suspect]
     Active Substance: SODIUM CHLORIDE
     Indication: MEDICATION DILUTION
     Dosage: AFTER INFUSION OF ABOUT ONE THIRD
     Route: 041
     Dates: start: 20180515, end: 20180515
  3. METRONIDAZOLE AND SODIUM CHLORIDE INJECTION [Suspect]
     Active Substance: METRONIDAZOLE\SODIUM CHLORIDE
     Indication: PERIODONTITIS
     Dosage: AFTER INFUSION OF ABOUT ONE THIRD
     Route: 041
     Dates: start: 20180515, end: 20180515
  4. METRONIDAZOLE AND SODIUM CHLORIDE INJECTION [Suspect]
     Active Substance: METRONIDAZOLE\SODIUM CHLORIDE
     Dosage: DOSE RE?INTRODUCED
     Route: 041
  5. MINGKEXIN [Suspect]
     Active Substance: CEFUROXIME SODIUM
     Dosage: DOSE RE?INTRODUCED
     Route: 041
  6. 0.9% SODIUM CHLORIDE INJECTION [Suspect]
     Active Substance: SODIUM CHLORIDE
     Dosage: DOSE RE?INTRODUCED
     Route: 041

REACTIONS (1)
  - Hypersensitivity [Recovering/Resolving]

NARRATIVE: CASE EVENT DATE: 20180515
